FAERS Safety Report 5031544-X (Version None)
Quarter: 2006Q2

REPORT INFORMATION
  Report Type: 
  Country: None (occurrence: None)
  Receive Date: 20060616
  Receipt Date: 20060530
  Transmission Date: 20061013
  Serious: Yes (Hospitalization)
  Sender: FDA-Public Use
  Company Number: US200603000454

PATIENT
  Age: 55 Year
  Sex: Female
  Weight: 67.1 kg

DRUGS (3)
  1. ZYPREXA [Suspect]
     Indication: BIPOLAR DISORDER
     Dosage: ORAL
     Route: 048
     Dates: start: 19960101
  2. VALPROATE SODIUM [Concomitant]
  3. VALPROATE SODIUM [Concomitant]

REACTIONS (7)
  - CHOLELITHIASIS [None]
  - DIABETES MELLITUS NON-INSULIN-DEPENDENT [None]
  - DIABETIC NEUROPATHY [None]
  - HYPERTENSION [None]
  - PANCREATITIS [None]
  - VISION BLURRED [None]
  - WEIGHT INCREASED [None]
